FAERS Safety Report 19632650 (Version 1)
Quarter: 2021Q3

REPORT INFORMATION
  Report Type: Spontaneous
  Country: CN (occurrence: CN)
  Receive Date: 20210728
  Receipt Date: 20210728
  Transmission Date: 20211014
  Serious: Yes (Hospitalization)
  Sender: FDA-Public Use
  Company Number: CN-BAXTER-2021BAX021904

PATIENT
  Sex: Female
  Weight: 72.5 kg

DRUGS (12)
  1. EPIRUBICIN [Suspect]
     Active Substance: EPIRUBICIN
     Dosage: DOSE REINTRODUCED; EPIRUBICIN + 0.9% NS
     Route: 041
  2. 0.9% SODIUM CHLORIDE INJECTION [Suspect]
     Active Substance: SODIUM CHLORIDE
     Dosage: DOSE REINTRODUCED; VINCRISTINE + 0.9% NS
     Route: 042
  3. EPIRUBICIN [Suspect]
     Active Substance: EPIRUBICIN
     Indication: LYMPHOMA
     Dosage: EPIRUBICIN 90 MG + 0.9% NS 100 ML
     Route: 041
     Dates: start: 20210626, end: 20210626
  4. SALINE [Suspect]
     Active Substance: SODIUM CHLORIDE
     Indication: MEDICATION DILUTION
     Dosage: CYCLOPHOSPHAMIDE 1.0 G + 0.9% NS 100 ML
     Route: 041
     Dates: start: 20210626, end: 20210626
  5. VINCRISTINE [Suspect]
     Active Substance: VINCRISTINE
     Indication: LYMPHOMA
     Dosage: VINCRISTINE 1.75 MG + 0.9% NS 20 ML
     Route: 042
     Dates: start: 20210626, end: 20210626
  6. ENDOXAN [Suspect]
     Active Substance: CYCLOPHOSPHAMIDE
     Indication: LYMPHOMA
     Dosage: CYCLOPHOSPHAMIDE 1.0 G + 0.9% NS 100 ML
     Route: 041
     Dates: start: 20210626, end: 20210626
  7. 0.9% SODIUM CHLORIDE INJECTION [Suspect]
     Active Substance: SODIUM CHLORIDE
     Dosage: EPIRUBICIN 90 MG + 0.9% NS 100 ML
     Route: 041
     Dates: start: 20210626, end: 20210626
  8. 0.9% SODIUM CHLORIDE INJECTION [Suspect]
     Active Substance: SODIUM CHLORIDE
     Dosage: DOSE REINTRODUCED; EPIRUBICIN + 0.9% NS
     Route: 041
  9. VINCRISTINE [Suspect]
     Active Substance: VINCRISTINE
     Dosage: DOSE REINTRODUCED; VINCRISTINE + 0.9% NS
     Route: 042
  10. ENDOXAN [Suspect]
     Active Substance: CYCLOPHOSPHAMIDE
     Dosage: DOSE REINTRODUCED; CYCLOPHOSPHAMIDE + 0.9% NS
     Route: 041
  11. 0.9% SODIUM CHLORIDE INJECTION [Suspect]
     Active Substance: SODIUM CHLORIDE
     Indication: MEDICATION DILUTION
     Dosage: VINCRISTINE 1.75 MG + 0.9% NS 20 ML
     Route: 042
     Dates: start: 20210626, end: 20210626
  12. SALINE [Suspect]
     Active Substance: SODIUM CHLORIDE
     Dosage: DOSE REINTRODUCED; CYCLOPHOSPHAMIDE + 0.9% NS
     Route: 041

REACTIONS (1)
  - Myelosuppression [Recovered/Resolved]

NARRATIVE: CASE EVENT DATE: 20210703
